FAERS Safety Report 8614425-1 (Version None)
Quarter: 2012Q3

REPORT INFORMATION
  Report Type: 
  Country: None (occurrence: None)
  Receive Date: 20120823
  Receipt Date: 20120814
  Transmission Date: 20120928
  Serious: Yes (Hospitalization, Other)
  Sender: FDA-Public Use
  Company Number: US-JNJFOC-20100705097

PATIENT
  Sex: Female

DRUGS (5)
  1. CIPROFLOXACIN HCL [Suspect]
     Indication: BACTERIAL INFECTION
     Route: 065
  2. LEVAQUIN [Suspect]
     Indication: BRONCHITIS
     Route: 048
     Dates: start: 20070801
  3. CIPROFLOXACIN HCL [Suspect]
     Indication: URINARY TRACT INFECTION
     Route: 065
  4. METHYLPREDNISOLONE [Suspect]
     Indication: BRONCHITIS
     Route: 065
     Dates: start: 20070201
  5. PREDNISONE TAB [Suspect]
     Indication: BRONCHITIS
     Route: 065

REACTIONS (8)
  - LIGAMENT RUPTURE [None]
  - PAIN [None]
  - BACK PAIN [None]
  - TENDON RUPTURE [None]
  - ARTHRALGIA [None]
  - FATIGUE [None]
  - NECK PAIN [None]
  - PAIN IN EXTREMITY [None]
